FAERS Safety Report 17855832 (Version 1)
Quarter: 2020Q2

REPORT INFORMATION
  Report Type: Spontaneous
  Country: CN (occurrence: CN)
  Receive Date: 20200603
  Receipt Date: 20200603
  Transmission Date: 20200714
  Serious: Yes (Hospitalization)
  Sender: FDA-Public Use
  Company Number: CN-SHIRE-CN202017530

PATIENT

DRUGS (1)
  1. HUMAN ALBUMIN [Suspect]
     Active Substance: ALBUMIN HUMAN
     Indication: HYPOPROTEINAEMIA
     Dosage: 10 BAG, 2X/DAY:BID
     Route: 042
     Dates: start: 20200518, end: 20200523

REACTIONS (5)
  - Erythema [Unknown]
  - Peripheral swelling [Unknown]
  - Joint swelling [Unknown]
  - Infusion related reaction [Unknown]
  - Pruritus [Recovering/Resolving]

NARRATIVE: CASE EVENT DATE: 20200523
